FAERS Safety Report 24846396 (Version 1)
Quarter: 2025Q1

REPORT INFORMATION
  Report Type: Report from Study
  Country: US (occurrence: US)
  Receive Date: 20250115
  Receipt Date: 20250115
  Transmission Date: 20250409
  Serious: Yes (Other)
  Sender: AGIOS PHARMACEUTICALS
  Company Number: US-AGIOS-2501US04051

PATIENT
  Sex: Female

DRUGS (1)
  1. MITAPIVAT [Suspect]
     Active Substance: MITAPIVAT
     Indication: Pyruvate kinase deficiency anaemia
     Route: 048
     Dates: start: 20240322

REACTIONS (6)
  - Hepatic vascular thrombosis [Unknown]
  - Swelling face [Unknown]
  - Lip swelling [Unknown]
  - Rash [Unknown]
  - Product dose omission issue [Unknown]
  - Haemoglobin decreased [Unknown]
